FAERS Safety Report 9013706 (Version 2)
Quarter: 2013Q2

REPORT INFORMATION
  Report Type: Spontaneous
  Country: IT (occurrence: IT)
  Receive Date: 20130115
  Receipt Date: 20130405
  Transmission Date: 20140414
  Serious: Yes (Death)
  Sender: FDA-Public Use
  Company Number: PHHY2013IT002093

PATIENT
  Sex: Female

DRUGS (1)
  1. ZOMETA [Suspect]
     Indication: BREAST CANCER STAGE IV
     Dosage: 4 MG, MONTHLY
     Route: 042
     Dates: start: 20090301, end: 20110525

REACTIONS (3)
  - Osteonecrosis of jaw [Fatal]
  - Breast cancer [Fatal]
  - Malignant neoplasm progression [Fatal]
